FAERS Safety Report 19264514 (Version 1)
Quarter: 2021Q2

REPORT INFORMATION
  Report Type: Spontaneous
  Country: US (occurrence: US)
  Receive Date: 20210517
  Receipt Date: 20210517
  Transmission Date: 20210717
  Serious: Yes (Other)
  Sender: FDA-Public Use
  Company Number: US-MYLANLABS-2021M1026740

PATIENT
  Sex: Female
  Weight: 57 kg

DRUGS (3)
  1. URELLE [Suspect]
     Active Substance: HYOSCYAMINE SULFATE\METHENAMINE\METHYLENE BLUE\PHENYL SALICYLATE\SODIUM PHOSPHATE, MONOBASIC, MONOHYDRATE
     Indication: URINARY TRACT INFECTION
  2. URELLE [Suspect]
     Active Substance: HYOSCYAMINE SULFATE\METHENAMINE\METHYLENE BLUE\PHENYL SALICYLATE\SODIUM PHOSPHATE, MONOBASIC, MONOHYDRATE
     Indication: PAIN
  3. URELLE [Suspect]
     Active Substance: HYOSCYAMINE SULFATE\METHENAMINE\METHYLENE BLUE\PHENYL SALICYLATE\SODIUM PHOSPHATE, MONOBASIC, MONOHYDRATE
     Indication: CYSTITIS
     Dosage: 1 THREE TIMES A DAY, TID
     Route: 048
     Dates: end: 20210430

REACTIONS (8)
  - Asthenia [Recovering/Resolving]
  - Chromaturia [Recovering/Resolving]
  - Tachycardia [Recovering/Resolving]
  - Dysphonia [Recovering/Resolving]
  - Electrocardiogram T wave inversion [Recovering/Resolving]
  - Vision blurred [Not Recovered/Not Resolved]
  - Renal impairment [Recovering/Resolving]
  - Blood pressure increased [Recovering/Resolving]

NARRATIVE: CASE EVENT DATE: 20210502
